FAERS Safety Report 14870419 (Version 1)
Quarter: 2018Q2

REPORT INFORMATION
  Report Type: Spontaneous
  Country: AU (occurrence: AU)
  Receive Date: 20180509
  Receipt Date: 20180509
  Transmission Date: 20180711
  Serious: Yes (Other)
  Sender: FDA-Public Use
  Company Number: PHHY2018AU074677

PATIENT
  Age: 29 Year
  Sex: Male

DRUGS (1)
  1. CODEINE+IBUPROFEN [Suspect]
     Active Substance: CODEINE\IBUPROFEN
     Indication: PRODUCT USED FOR UNKNOWN INDICATION
     Dosage: 45 DF, QD
     Route: 065

REACTIONS (13)
  - Myalgia [Unknown]
  - Withdrawal syndrome [Recovered/Resolved]
  - Restlessness [Unknown]
  - Disturbance in attention [Unknown]
  - Agitation [Unknown]
  - Nasal congestion [Unknown]
  - Tremor [Unknown]
  - Anxiety [Unknown]
  - Diarrhoea [Unknown]
  - Nausea [Unknown]
  - Drug dependence [Unknown]
  - Hyperhidrosis [Unknown]
  - Vomiting [Unknown]
